FAERS Safety Report 12987414 (Version 1)
Quarter: 2016Q4

REPORT INFORMATION
  Report Type: Report from Study
  Country: US (occurrence: US)
  Receive Date: 20161130
  Receipt Date: 20161130
  Transmission Date: 20170207
  Serious: Yes (Hospitalization, Other)
  Sender: FDA-Public Use
  Company Number: US-ROCHE-1725099

PATIENT
  Age: 68 Year
  Sex: Female
  Weight: 72.7 kg

DRUGS (15)
  1. ATIVAN [Concomitant]
     Active Substance: LORAZEPAM
  2. PACLITAXEL. [Suspect]
     Active Substance: PACLITAXEL
     Dosage: OVER 3 HRS ON DAY 1
     Route: 042
  3. ALBUTEROL. [Concomitant]
     Active Substance: ALBUTEROL
  4. ZOCOR [Concomitant]
     Active Substance: SIMVASTATIN
  5. CLARITIN (UNITED STATES) [Concomitant]
  6. PRILOSEC [Concomitant]
     Active Substance: OMEPRAZOLE MAGNESIUM
  7. PROZAC [Concomitant]
     Active Substance: FLUOXETINE HYDROCHLORIDE
  8. PACLITAXEL. [Suspect]
     Active Substance: PACLITAXEL
     Indication: OVARIAN EPITHELIAL CANCER
     Dosage: OVER 3 HRS ON DAY 1
     Route: 042
     Dates: start: 20151202, end: 20151223
  9. BEVACIZUMAB [Suspect]
     Active Substance: BEVACIZUMAB
     Indication: OVARIAN EPITHELIAL CANCER
     Dosage: 15 MG/KG OVER 30-90 MIN ON DAY 1
     Route: 042
     Dates: start: 20151223, end: 20151223
  10. CARBOPLATIN. [Suspect]
     Active Substance: CARBOPLATIN
     Dosage: AUC = 6?OVER 30 MINS ON DAY 1?CYCLES 2-6
     Route: 042
  11. COMPAZINE [Concomitant]
     Active Substance: PROCHLORPERAZINE MALEATE
  12. VELIPARIB [Suspect]
     Active Substance: VELIPARIB
     Dosage: DAYS -2-5
     Route: 048
  13. VELIPARIB [Suspect]
     Active Substance: VELIPARIB
     Indication: OVARIAN EPITHELIAL CANCER
     Dosage: DAYS -2-5
     Route: 048
     Dates: start: 20151130, end: 20151227
  14. CARBOPLATIN. [Suspect]
     Active Substance: CARBOPLATIN
     Indication: OVARIAN EPITHELIAL CANCER
     Dosage: AUC = 6?OVER 30 MINS ON DAY 1
     Route: 042
     Dates: start: 20151202, end: 20151223
  15. ZOFRAN [Concomitant]
     Active Substance: ONDANSETRON HYDROCHLORIDE

REACTIONS (7)
  - Neutrophil count decreased [Unknown]
  - Febrile neutropenia [Recovered/Resolved]
  - Platelet count decreased [Unknown]
  - Febrile neutropenia [Unknown]
  - Neutrophil count decreased [Recovered/Resolved]
  - Leukocytosis [Unknown]
  - White blood cell count decreased [Unknown]

NARRATIVE: CASE EVENT DATE: 20151202
